FAERS Safety Report 5232596-4 (Version None)
Quarter: 2007Q1

REPORT INFORMATION
  Report Type: 
  Country: None (occurrence: None)
  Receive Date: 20070207
  Receipt Date: 20070112
  Transmission Date: 20070707
  Serious: Yes (Congenital Anomaly)
  Sender: FDA-Public Use
  Company Number: US-ROCHE-480496

PATIENT
  Age: 1 Day
  Weight: 2.2 kg

DRUGS (10)
  1. MYCOPHENOLATE MOFETIL [Suspect]
  2. TACROLIMUS [Concomitant]
  3. PREDNISONE [Concomitant]
  4. AMLODIPINE [Concomitant]
  5. METOPROLOL SUCCINATE [Concomitant]
  6. FUROSEMIDE [Concomitant]
  7. VITAMIN AND MINERAL PRENATAL SUPPLEMENT W/ FOLIC ACID CAP [Concomitant]
  8. EPOGEN [Concomitant]
  9. ASPIRIN [Concomitant]
  10. ACYCLOVIR [Concomitant]

REACTIONS (5)
  - CLEFT LIP AND PALATE [None]
  - CONGENITAL DIAPHRAGMATIC HERNIA [None]
  - HEART DISEASE CONGENITAL [None]
  - MICROTIA [None]
  - PREMATURE BABY [None]
